FAERS Safety Report 7213289-0 (Version None)
Quarter: 2010Q4

REPORT INFORMATION
  Report Type: 
  Country: None (occurrence: None)
  Receive Date: 20101126
  Receipt Date: 20100814
  Transmission Date: 20110411
  Serious: No
  Sender: FDA-Public Use
  Company Number: 313046

PATIENT
  Age: 61 Year
  Sex: Female

DRUGS (1)
  1. VICTOZA [Suspect]
     Indication: TYPE 2 DIABETES MELLITUS
     Dosage: 1.2 MG, QD, SUBUCATANEOUS
     Route: 058

REACTIONS (1)
  - NO ADVERSE EVENT [None]
